FAERS Safety Report 8403097-7 (Version None)
Quarter: 2012Q2

REPORT INFORMATION
  Report Type: 
  Country: None (occurrence: None)
  Receive Date: 20120601
  Receipt Date: 20060720
  Transmission Date: 20120825
  Serious: Yes (Other)
  Sender: FDA-Public Use
  Company Number: JP-BRISTOL-MYERS SQUIBB COMPANY-16525974

PATIENT

DRUGS (6)
  1. ALLOPURINOL [Concomitant]
  2. CANDESARTAN CILEXETIL [Concomitant]
  3. EPINASTINE HYDROCHLORIDE [Concomitant]
  4. ABILIFY [Suspect]
     Dosage: DOSE INCREASED TO 6MG BID 2XMRNG AND EVENG
     Route: 048
  5. FAMOTIDINE [Concomitant]
  6. LASIX [Concomitant]

REACTIONS (1)
  - ASTHMA [None]
